FAERS Safety Report 7820000-9 (Version None)
Quarter: 2011Q4

REPORT INFORMATION
  Report Type: 
  Country: None (occurrence: None)
  Receive Date: 20111018
  Receipt Date: 20111013
  Transmission Date: 20120403
  Serious: Yes (Hospitalization, Other)
  Sender: FDA-Public Use
  Company Number: FR-PFIZER INC-2011147400

PATIENT
  Age: 63 Year
  Sex: Female
  Weight: 69 kg

DRUGS (4)
  1. LYRICA [Suspect]
     Indication: NEURALGIA
     Dosage: 150 MG DAILY
     Route: 048
     Dates: start: 20100824, end: 20110818
  2. DURAGESIC-100 [Concomitant]
     Indication: FIBROMYALGIA
     Dosage: 100 A?G A DAY
     Route: 003
  3. IXEL [Concomitant]
     Indication: DEPRESSION
     Dosage: 100 MG A DAY
     Route: 048
  4. ACETAMINOPHEN [Concomitant]
     Indication: FIBROMYALGIA
     Dosage: 3 G A DAY
     Route: 048

REACTIONS (2)
  - HYPERTROPHIC CARDIOMYOPATHY [None]
  - CARDIAC FAILURE CONGESTIVE [None]
